FAERS Safety Report 7328911-8 (Version None)
Quarter: 2011Q1

REPORT INFORMATION
  Report Type: 
  Country: None (occurrence: None)
  Receive Date: 20110303
  Receipt Date: 20110223
  Transmission Date: 20110831
  Serious: Yes (Other)
  Sender: FDA-Public Use
  Company Number: CA-JNJFOC-20110208563

PATIENT
  Sex: Male
  Weight: 112.5 kg

DRUGS (5)
  1. BENADRYL [Concomitant]
     Indication: PREMEDICATION
     Route: 042
  2. VENTOLIN [Concomitant]
     Dosage: 2 PUFFS
  3. SOLU-CORTEF [Concomitant]
     Indication: PREMEDICATION
     Route: 042
  4. REMICADE [Suspect]
     Indication: COLITIS ULCERATIVE
     Route: 042
  5. ACETAMINOPHEN [Concomitant]
     Indication: PREMEDICATION
     Route: 048

REACTIONS (6)
  - CHEST DISCOMFORT [None]
  - OXYGEN SATURATION DECREASED [None]
  - COUGH [None]
  - BREATH SOUNDS ABNORMAL [None]
  - FLUSHING [None]
  - INFUSION RELATED REACTION [None]
